FAERS Safety Report 11248249 (Version 1)
Quarter: 2015Q3

REPORT INFORMATION
  Report Type: Spontaneous
  Country: JP (occurrence: JP)
  Receive Date: 20150708
  Receipt Date: 20150708
  Transmission Date: 20151125
  Serious: Yes (Other)
  Sender: FDA-Public Use
  Company Number: JP-VIIV HEALTHCARE LIMITED-JP2015JPN092720

PATIENT
  Age: 49 Year
  Sex: Male

DRUGS (2)
  1. TIVICAY [Suspect]
     Active Substance: DOLUTEGRAVIR SODIUM
     Indication: HIV INFECTION
     Dosage: 50 MG, QD
     Route: 048
     Dates: start: 20140619
  2. TRUVADA [Suspect]
     Active Substance: EMTRICITABINE\TENOFOVIR DISOPROXIL FUMARATE
     Indication: HIV INFECTION
     Dosage: UNK, QD
     Route: 048
     Dates: start: 1999

REACTIONS (7)
  - Blood HIV RNA increased [Unknown]
  - Treatment noncompliance [Unknown]
  - Cognitive disorder [Unknown]
  - Disturbance in attention [Unknown]
  - AIDS dementia complex [Unknown]
  - Amnesia [Unknown]
  - Depression [Unknown]

NARRATIVE: CASE EVENT DATE: 201411
